FAERS Safety Report 16415456 (Version 4)
Quarter: 2021Q2

REPORT INFORMATION
  Report Type: Spontaneous
  Country: US (occurrence: US)
  Receive Date: 20190611
  Receipt Date: 20210422
  Transmission Date: 20210716
  Serious: No
  Sender: FDA-Public Use
  Company Number: US-SA-2019SA152632

PATIENT
  Age: 49 Year
  Sex: Female
  Weight: 75.28 kg

DRUGS (6)
  1. DOCETAXEL. [Suspect]
     Active Substance: DOCETAXEL
     Indication: BREAST CANCER FEMALE
     Dosage: 141 MG, Q3W
     Route: 042
     Dates: start: 20121003, end: 20121003
  2. NEOSAR [Concomitant]
     Active Substance: CYCLOPHOSPHAMIDE
     Indication: BREAST CANCER FEMALE
     Dosage: UNK
  3. DOCETAXEL. [Suspect]
     Active Substance: DOCETAXEL
     Dosage: 141 MG, Q3W
     Route: 042
     Dates: start: 20130321, end: 20130321
  4. CYTOXAN [Concomitant]
     Active Substance: CYCLOPHOSPHAMIDE
     Indication: BREAST CANCER FEMALE
     Dosage: EVERY 21?28 DAYS FOR 6 CYCLES
  5. HERCEPTIN [Concomitant]
     Active Substance: TRASTUZUMAB
     Dosage: WEEK TO WEEK
  6. NEOSAR [Concomitant]
     Active Substance: CYCLOPHOSPHAMIDE
     Dosage: UNK

REACTIONS (1)
  - Psychological trauma [Unknown]
